FAERS Safety Report 5315076-7 (Version None)
Quarter: 2007Q2

REPORT INFORMATION
  Report Type: 
  Country: None (occurrence: None)
  Receive Date: 20070502
  Receipt Date: 20070206
  Transmission Date: 20071010
  Serious: Yes (Life-Threatening)
  Sender: FDA-Public Use
  Company Number: FR-PFIZER INC-2007011593

PATIENT
  Sex: Female

DRUGS (5)
  1. ATARAX [Suspect]
     Route: 064
  2. LARGACTIL [Suspect]
     Route: 064
  3. PROZAC [Suspect]
     Dosage: DAILY DOSE:20MG-FREQ:ONCE DAILY
     Route: 064
  4. TRANDATE [Suspect]
     Indication: COMPLICATION OF PREGNANCY
     Route: 064
  5. LOXEN [Suspect]
     Indication: COMPLICATION OF PREGNANCY
     Route: 064

REACTIONS (4)
  - BRADYCARDIA [None]
  - DRUG EXPOSURE DURING PREGNANCY [None]
  - HYPOTONIA [None]
  - RESPIRATORY DISTRESS [None]
